FAERS Safety Report 8590135 (Version 3)
Quarter: 2013Q2

REPORT INFORMATION
  Report Type: Spontaneous
  Country: IE (occurrence: IE)
  Receive Date: 20120601
  Receipt Date: 20130411
  Transmission Date: 20140414
  Serious: Yes (Death, Other)
  Sender: FDA-Public Use
  Company Number: IE-JNJFOC-20120520107

PATIENT
  Age: 75 Year
  Sex: Female

DRUGS (9)
  1. SIMPONI [Suspect]
     Indication: RHEUMATOID ARTHRITIS
     Route: 058
     Dates: start: 20110427
  2. ZOCOR [Concomitant]
  3. LOSEC [Concomitant]
  4. LYRICA [Concomitant]
  5. DELTACORTRIL [Concomitant]
     Route: 065
  6. FUROSEMIDE [Concomitant]
  7. WARFARIN [Concomitant]
     Route: 065
  8. LUSTRAL [Concomitant]
     Route: 065
  9. FEMARA [Concomitant]
     Route: 065

REACTIONS (7)
  - Fluid overload [Unknown]
  - Pneumonia [Fatal]
  - Tachyarrhythmia [Unknown]
  - Cerebral infarction [Unknown]
  - Cyanosis central [Unknown]
  - Respiratory distress [Unknown]
  - Dehydration [Unknown]
